FAERS Safety Report 25071225 (Version 2)
Quarter: 2025Q2

REPORT INFORMATION
  Report Type: Spontaneous
  Country: US (occurrence: US)
  Receive Date: 20250312
  Receipt Date: 20250408
  Transmission Date: 20250717
  Serious: Yes (Other)
  Sender: PURDUE
  Company Number: US-PURDUE PHARMA-USA-2025-0315999

PATIENT
  Sex: Male

DRUGS (2)
  1. OXYCONTIN [Suspect]
     Active Substance: OXYCODONE HYDROCHLORIDE
     Indication: Product used for unknown indication
     Route: 048
  2. OXYCODONE HYDROCHLORIDE [Suspect]
     Active Substance: OXYCODONE HYDROCHLORIDE
     Indication: Product used for unknown indication
     Route: 065

REACTIONS (25)
  - Rectal haemorrhage [Unknown]
  - Drug dependence [Unknown]
  - Congenital anomaly [Unknown]
  - Mental disorder [Unknown]
  - Defaecation urgency [Unknown]
  - Nightmare [Unknown]
  - Panic attack [Unknown]
  - Loss of personal independence in daily activities [Unknown]
  - General physical health deterioration [Unknown]
  - Impaired quality of life [Unknown]
  - Coordination abnormal [Unknown]
  - Stress [Unknown]
  - Confusional state [Unknown]
  - Vision blurred [Unknown]
  - Dizziness [Unknown]
  - Asthenia [Unknown]
  - Constipation [Unknown]
  - Somnolence [Unknown]
  - Hypotension [Unknown]
  - Anal pruritus [Unknown]
  - Tremor [Unknown]
  - Hyperhidrosis [Unknown]
  - Pain [Unknown]
  - Mood altered [Unknown]
  - Insomnia [Unknown]
